FAERS Safety Report 5731448-0 (Version None)
Quarter: 2008Q2

REPORT INFORMATION
  Report Type: 
  Country: None (occurrence: None)
  Receive Date: 20080506
  Receipt Date: 20080423
  Transmission Date: 20081010
  Serious: Yes (Other)
  Sender: FDA-Public Use
  Company Number: 231437J07USA

PATIENT
  Age: 59 Year
  Sex: Female
  Weight: 76.6579 kg

DRUGS (4)
  1. REBIF [Suspect]
     Indication: MULTIPLE SCLEROSIS
     Dosage: 44 MCG, 3 IN 1 WEEKS, SUBCUTANEOUS
     Route: 058
     Dates: start: 20041217
  2. PROVIGIL [Concomitant]
  3. GABAPENTIN [Concomitant]
  4. INDERAL [Concomitant]

REACTIONS (1)
  - TYPE 2 DIABETES MELLITUS [None]
